FAERS Safety Report 5068657-2 (Version None)
Quarter: 2006Q3

REPORT INFORMATION
  Report Type: 
  Country: None (occurrence: None)
  Receive Date: 20060802
  Receipt Date: 20060127
  Transmission Date: 20061208
  Serious: No
  Sender: FDA-Public Use
  Company Number: US-BRISTOL-MYERS SQUIBB COMPANY-13261839

PATIENT
  Age: 79 Year
  Sex: Male
  Weight: 75 kg

DRUGS (5)
  1. COUMADIN [Suspect]
     Indication: CARDIAC PACEMAKER INSERTION
     Dosage: 5 MG 5 DAYS PER WEEK AND 2.5 MG TWO DAYS PER WEEK
     Dates: start: 20040901
  2. NORVASC [Concomitant]
  3. TENORMIN [Concomitant]
  4. HYTRIN [Concomitant]
  5. LUMIGAN [Concomitant]

REACTIONS (1)
  - HEPATIC ENZYME INCREASED [None]
